FAERS Safety Report 7915970 (Version 2)
Quarter: 2013Q2

REPORT INFORMATION
  Report Type: Spontaneous
  Country: US (occurrence: None)
  Receive Date: 20110405
  Receipt Date: 20130404
  Transmission Date: 20140414
  Serious: Yes (Hospitalization, Other)
  Sender: FDA-Public Use
  Company Number: AUR-APL-2011-01081

PATIENT
  Age: 33 Year
  Sex: Male

DRUGS (3)
  1. SERTRALINE (SERTRALINE) (SERTRALINE) [Suspect]
     Indication: ADJUSTMENT DISORDER
  2. FLUOXETINE [Suspect]
     Indication: ADJUSTMENT DISORDER
     Route: 048
  3. DIAZEPAM (DIAZEPAM) [Suspect]
     Indication: ADJUSTMENT DISORDER

REACTIONS (18)
  - Hallucination, auditory [None]
  - Dizziness [None]
  - Disturbance in attention [None]
  - Confusional state [None]
  - Haematemesis [None]
  - Disorientation [None]
  - Insomnia [None]
  - Anger [None]
  - Panic attack [None]
  - Nervousness [None]
  - Musculoskeletal stiffness [None]
  - Stress [None]
  - Anxiety [None]
  - Blood pressure increased [None]
  - Depression [None]
  - Condition aggravated [None]
  - Hyperreflexia [None]
  - Eating disorder [None]
